FAERS Safety Report 17594243 (Version 1)
Quarter: 2020Q1

REPORT INFORMATION
  Report Type: Spontaneous
  Country: US (occurrence: US)
  Receive Date: 20200327
  Receipt Date: 20200327
  Transmission Date: 20200409
  Serious: Yes (Other)
  Sender: FDA-Public Use
  Company Number: US-009507513-2003USA006882

PATIENT
  Sex: Female
  Weight: 57.6 kg

DRUGS (1)
  1. NEXPLANON [Suspect]
     Active Substance: ETONOGESTREL
     Dosage: 1 IMPLANT, RIGHT ARM (NON-DOMINANT ARM)
     Route: 059
     Dates: start: 201702, end: 20200228

REACTIONS (2)
  - Complication of device removal [Recovered/Resolved]
  - Device dislocation [Recovered/Resolved]
